FAERS Safety Report 4705491-4 (Version None)
Quarter: 2005Q2

REPORT INFORMATION
  Report Type: 
  Country: None (occurrence: None)
  Receive Date: 20050629
  Receipt Date: 20050131
  Transmission Date: 20051028
  Serious: Yes (Hospitalization, Other)
  Sender: FDA-Public Use
  Company Number: 200312983US

PATIENT
  Age: 74 Year
  Sex: Female
  Weight: 120.5 kg

DRUGS (9)
  1. ACTOS [Suspect]
     Indication: DIABETES MELLITUS
     Dosage: 15 MG QD; PO
     Route: 048
     Dates: start: 20030318, end: 20030329
  2. ACTOS [Concomitant]
  3. AMARYL [Concomitant]
  4. NITRO-BID [Concomitant]
  5. HYZAAR [Concomitant]
  6. ZOCOR [Concomitant]
  7. BUMEX [Concomitant]
  8. DETROL [Concomitant]
  9. SYNTHROID [Concomitant]

REACTIONS (3)
  - CARDIAC FAILURE CONGESTIVE [None]
  - CARDIOMEGALY [None]
  - FLUID OVERLOAD [None]
